FAERS Safety Report 5902807-8 (Version None)
Quarter: 2008Q3

REPORT INFORMATION
  Report Type: 
  Country: None (occurrence: None)
  Receive Date: 20080929
  Receipt Date: 20080929
  Transmission Date: 20090109
  Serious: Yes (Other)
  Sender: FDA-Public Use
  Company Number: None

PATIENT
  Age: 33 Year
  Sex: Female
  Weight: 74.8435 kg

DRUGS (1)
  1. LEVAQUIN [Suspect]
     Indication: IMPETIGO
     Dosage: 500MG 1/DAY PO
     Route: 048
     Dates: start: 20080819, end: 20080823

REACTIONS (4)
  - ARTHRALGIA [None]
  - NEURALGIA [None]
  - RASH [None]
  - SKIN ULCER [None]
